FAERS Safety Report 22313246 (Version 2)
Quarter: 2024Q1

REPORT INFORMATION
  Report Type: Spontaneous
  Country: TW (occurrence: TW)
  Receive Date: 20230512
  Receipt Date: 20240101
  Transmission Date: 20240410
  Serious: Yes (Other)
  Sender: FDA-Public Use
  Company Number: TW-ROCHE-3343751

PATIENT
  Age: 66 Year
  Sex: Female

DRUGS (10)
  1. ERLOTINIB [Suspect]
     Active Substance: ERLOTINIB
     Indication: Lung adenocarcinoma
     Dosage: UNK UNK, UNKNOWN FREQ.
     Route: 048
     Dates: start: 201903, end: 201905
  2. ATEZOLIZUMAB [Suspect]
     Active Substance: ATEZOLIZUMAB
     Indication: Lung adenocarcinoma
     Dosage: UNK UNK, UNKNOWN FREQ. (ABCP)
     Route: 065
     Dates: start: 202207
  3. BEVACIZUMAB [Suspect]
     Active Substance: BEVACIZUMAB
     Indication: Lung adenocarcinoma
     Dosage: UNK UNK, UNKNOWN FREQ. (ABCP)
     Route: 065
     Dates: start: 202207
  4. PACLITAXEL [Concomitant]
     Active Substance: PACLITAXEL
     Indication: Lung adenocarcinoma
     Dosage: UNK UNK, UNKNOWN FREQ.
     Route: 065
     Dates: start: 202203, end: 202204
  5. PACLITAXEL [Concomitant]
     Active Substance: PACLITAXEL
     Dosage: UNK UNK, UNKNOWN FREQ. (ABCP)
     Route: 065
     Dates: start: 202207
  6. CARBOPLATIN [Concomitant]
     Active Substance: CARBOPLATIN
     Indication: Lung adenocarcinoma
     Dosage: UNK UNK, UNKNOWN FREQ.
     Route: 065
     Dates: start: 201905, end: 201910
  7. CARBOPLATIN [Concomitant]
     Active Substance: CARBOPLATIN
     Dosage: UNK UNK, UNKNOWN FREQ. (ABCP)
     Route: 065
     Dates: start: 202207
  8. PEMETREXED [Concomitant]
     Active Substance: PEMETREXED
     Indication: Lung adenocarcinoma
     Dosage: UNK UNK, UNKNOWN FREQ. (PEMETREXED + CARBOPLATIN)
     Route: 065
     Dates: start: 201905, end: 201910
  9. PEMETREXED [Concomitant]
     Active Substance: PEMETREXED
     Dosage: UNK UNK, UNKNOWN FREQ.
     Route: 065
     Dates: start: 201910, end: 202203
  10. AFATINIB [Concomitant]
     Active Substance: AFATINIB
     Indication: Lung adenocarcinoma
     Dosage: UNK UNK, UNKNOWN FREQ.
     Route: 065
     Dates: start: 202204, end: 202206

REACTIONS (4)
  - Disseminated intravascular coagulation [Unknown]
  - Disease progression [Unknown]
  - Pleural effusion [Unknown]
  - Off label use [Unknown]
